FAERS Safety Report 9146082 (Version 1)
Quarter: 2013Q1

REPORT INFORMATION
  Report Type: Spontaneous
  Country: US (occurrence: US)
  Receive Date: 20130307
  Receipt Date: 20130307
  Transmission Date: 20140127
  Serious: Yes (Hospitalization)
  Sender: FDA-Public Use
  Company Number: US-MYLANLABS-2013S1004166

PATIENT
  Age: 24 Year
  Sex: Female

DRUGS (9)
  1. MORPHINE [Suspect]
     Indication: ABDOMINAL PAIN
     Route: 065
  2. PROCET [Suspect]
     Indication: ABDOMINAL PAIN
     Route: 065
  3. CLONAZEPAM [Concomitant]
     Route: 065
  4. LORAZEPAM [Concomitant]
     Route: 065
  5. DIARSED                            /00858501/ [Concomitant]
     Route: 065
  6. SERTRALINE [Concomitant]
     Route: 065
  7. FENOFIBRATE [Concomitant]
     Route: 065
  8. METOPROLOL [Concomitant]
     Route: 065
  9. LEVOTHYROXINE SODIUM [Concomitant]
     Route: 065

REACTIONS (1)
  - Narcotic bowel syndrome [Recovered/Resolved]
